FAERS Safety Report 5079669-7 (Version None)
Quarter: 2006Q3

REPORT INFORMATION
  Report Type: 
  Country: None (occurrence: None)
  Receive Date: 20060808
  Receipt Date: 20060725
  Transmission Date: 20061208
  Serious: Yes (Other)
  Sender: FDA-Public Use
  Company Number: US200604002051

PATIENT
  Age: 62 Year
  Sex: Male

DRUGS (3)
  1. HUMULIN R [Suspect]
     Indication: DIABETES MELLITUS
     Dosage: SEE IMAGE
     Dates: start: 20010101
  2. HUMULIN R [Suspect]
  3. HUMULIN N [Suspect]
     Indication: DIABETES MELLITUS
     Dates: start: 20010101

REACTIONS (4)
  - DIABETES MELLITUS INADEQUATE CONTROL [None]
  - DRUG INEFFECTIVE [None]
  - RENAL FAILURE [None]
  - RENAL TRANSPLANT [None]
